FAERS Safety Report 23708942 (Version 1)
Quarter: 2024Q2

REPORT INFORMATION
  Report Type: Spontaneous
  Country: US (occurrence: None)
  Receive Date: 20240404
  Receipt Date: 20240404
  Transmission Date: 20240715
  Serious: No
  Sender: FDA-Public Use
  Company Number: None

PATIENT

DRUGS (2)
  1. PHENYLEPHRINE [Suspect]
     Active Substance: PHENYLEPHRINE HYDROCHLORIDE
  2. NEOSTIGMINE [Suspect]
     Active Substance: NEOSTIGMINE

REACTIONS (2)
  - Product name confusion [None]
  - Intercepted product prescribing error [None]
